FAERS Safety Report 5080125-0 (Version None)
Quarter: 2006Q3

REPORT INFORMATION
  Report Type: 
  Country: None (occurrence: None)
  Receive Date: 20060810
  Receipt Date: 20060801
  Transmission Date: 20061208
  Serious: Yes (Life-Threatening, Hospitalization)
  Sender: FDA-Public Use
  Company Number: 2006PV014726

PATIENT
  Age: 65 Year
  Sex: Male
  Weight: 156.0374 kg

DRUGS (9)
  1. BYETTA [Suspect]
     Indication: DIABETES MELLITUS NON-INSULIN-DEPENDENT
     Dosage: 10 MCG; BID; SC; SEE IMAGE
     Route: 058
     Dates: start: 20051110, end: 20051201
  2. BYETTA [Suspect]
     Indication: DIABETES MELLITUS NON-INSULIN-DEPENDENT
     Dosage: 10 MCG; BID; SC; SEE IMAGE
     Route: 058
     Dates: start: 20051201
  3. HYDROCHLOROTHIAZIDE [Concomitant]
  4. METFORMIN HCL [Concomitant]
  5. LISINOPRIL [Concomitant]
  6. ARTHROTEC [Concomitant]
  7. VYTORIN [Concomitant]
  8. ANAPROX [Concomitant]
  9. COLCHICINE [Concomitant]

REACTIONS (9)
  - ACUTE RESPIRATORY FAILURE [None]
  - METABOLIC ACIDOSIS [None]
  - PANCREATIC PSEUDOCYST [None]
  - PANCREATITIS [None]
  - PANCREATITIS NECROTISING [None]
  - RENAL IMPAIRMENT [None]
  - SEPSIS [None]
  - SHOCK [None]
  - WEIGHT DECREASED [None]
